FAERS Safety Report 20759037 (Version 1)
Quarter: 2022Q2

REPORT INFORMATION
  Report Type: Spontaneous
  Country: US (occurrence: US)
  Receive Date: 20220427
  Receipt Date: 20220427
  Transmission Date: 20220721
  Serious: No
  Sender: FDA-Public Use
  Company Number: US-BioHaven Pharmaceuticals-2021BHV003097

PATIENT
  Age: 50 Year
  Sex: Female

DRUGS (1)
  1. NURTEC ODT [Suspect]
     Active Substance: RIMEGEPANT SULFATE
     Indication: Migraine
     Dosage: PATIENT WAS ^ON THE ACUTE DOSING^ AND RECEIVED HER FIRST SHIPMENT OF NURTEC FROM THE PHARMACY ON 03-
     Route: 065

REACTIONS (2)
  - Migraine [Unknown]
  - Nausea [Unknown]
